FAERS Safety Report 14213214 (Version 2)
Quarter: 2017Q4

REPORT INFORMATION
  Report Type: Spontaneous
  Country: US (occurrence: US)
  Receive Date: 20171122
  Receipt Date: 20171124
  Transmission Date: 20180321
  Serious: No
  Sender: FDA-Public Use
  Company Number: US-009507513-1711USA005975

PATIENT
  Sex: Male

DRUGS (6)
  1. HYDROXYZINE PAMOATE. [Concomitant]
     Active Substance: HYDROXYZINE PAMOATE
  2. ABILIFY [Concomitant]
     Active Substance: ARIPIPRAZOLE
  3. NATURES OWN MENS MULTIVITAMIN [Concomitant]
  4. WELLBUTRIN SR [Concomitant]
     Active Substance: BUPROPION HYDROCHLORIDE
  5. SUBOXONE [Concomitant]
     Active Substance: BUPRENORPHINE HYDROCHLORIDE\NALOXONE HYDROCHLORIDE
  6. ZEPATIER [Suspect]
     Active Substance: ELBASVIR\GRAZOPREVIR
     Indication: HEPATITIS C
     Dosage: 1 DF, QD (1 TABLET BY MOUTH EVERYDAY), 50 TO 100 MG
     Route: 048
     Dates: start: 201710

REACTIONS (1)
  - Fatigue [Unknown]
